FAERS Safety Report 8222906-8 (Version None)
Quarter: 2012Q1

REPORT INFORMATION
  Report Type: 
  Country: None (occurrence: None)
  Receive Date: 20120320
  Receipt Date: 20120315
  Transmission Date: 20120608
  Serious: Yes (Other)
  Sender: FDA-Public Use
  Company Number: US-ASTRAZENECA-2012SE01875

PATIENT
  Age: 53 Year
  Sex: Female

DRUGS (2)
  1. PRILOSEC OTC [Suspect]
     Route: 048
  2. NEXIUM [Suspect]
     Route: 048

REACTIONS (7)
  - KIDNEY INFECTION [None]
  - STRESS [None]
  - DEPRESSED MOOD [None]
  - WEIGHT INCREASED [None]
  - ADVERSE EVENT [None]
  - AMNESIA [None]
  - CEREBROVASCULAR ACCIDENT [None]
